FAERS Safety Report 8923202 (Version 2)
Quarter: 2013Q1

REPORT INFORMATION
  Report Type: Spontaneous
  Country: US (occurrence: None)
  Receive Date: 20121115
  Receipt Date: 20121207
  Transmission Date: 20140127
  Serious: Yes (Other)
  Sender: FDA-Public Use
  Company Number: US12415600

PATIENT
  Age: 15 Year
  Sex: Female
  Weight: 63.5 kg

DRUGS (3)
  1. EPIDUO [Suspect]
     Route: 061
     Dates: start: 201201
  2. CONCERTA (METHYLPHENIDATE HYDROCHLORIDE) [Concomitant]
  3. RELAFEN (NABUMETONE) [Concomitant]

REACTIONS (2)
  - Optic nerve disorder [None]
  - Benign intracranial hypertension [None]
